FAERS Safety Report 14175052 (Version 2)
Quarter: 2017Q4

REPORT INFORMATION
  Report Type: Report from Study
  Country: None (occurrence: CA)
  Receive Date: 20171109
  Receipt Date: 20171110
  Transmission Date: 20180321
  Serious: Yes (Other)
  Sender: FDA-Public Use
  Company Number: CA-ABBVIE-17S-028-2157459-00

PATIENT
  Sex: Male

DRUGS (1)
  1. KALETRA [Suspect]
     Active Substance: LOPINAVIR\RITONAVIR
     Indication: HIV INFECTION
     Dosage: TOTAL DAILY DOSE: 800/200 MG?UNIT DOSE: 400/100 MG?FORM STRENGTH: 200/50 MG
     Route: 048
     Dates: start: 20060519

REACTIONS (3)
  - Underweight [Unknown]
  - Myelodysplastic syndrome [Unknown]
  - Dental discomfort [Unknown]
